FAERS Safety Report 9551377 (Version 1)
Quarter: 2013Q2

REPORT INFORMATION
  Report Type: Spontaneous
  Country: None (occurrence: None)
  Receive Date: 20130627
  Receipt Date: 20130627
  Transmission Date: 20140414
  Serious: No
  Sender: FDA-Public Use
  Company Number: 1000045602

PATIENT
  Age: 88 Year
  Sex: Male

DRUGS (1)
  1. LINZESS (LINACLOTIDE) (145 MICROGRAM, CAPSULES) [Suspect]
     Route: 048
     Dates: start: 20130420

REACTIONS (5)
  - Decreased appetite [None]
  - Abdominal distension [None]
  - Diarrhoea [None]
  - Abdominal pain [None]
  - Oedema peripheral [None]
